FAERS Safety Report 7571146-4 (Version None)
Quarter: 2011Q2

REPORT INFORMATION
  Report Type: 
  Country: None (occurrence: None)
  Receive Date: 20110624
  Receipt Date: 20110622
  Transmission Date: 20111010
  Serious: Yes (Hospitalization)
  Sender: FDA-Public Use
  Company Number: JP-ABBOTT-10P-087-0665979-00

PATIENT
  Sex: Female
  Weight: 49 kg

DRUGS (16)
  1. MISOPROSTOL [Concomitant]
     Indication: GASTROINTESTINAL DISORDER
  2. HUMIRA [Suspect]
     Indication: RHEUMATOID ARTHRITIS
     Route: 058
     Dates: start: 20100122, end: 20100625
  3. SULFASALAZINE [Concomitant]
     Indication: RHEUMATOID ARTHRITIS
     Dates: start: 20091222, end: 20100625
  4. TOCOPHEROL CONCENTRATE CAP [Concomitant]
     Indication: PRODUCT USED FOR UNKNOWN INDICATION
     Dates: start: 20100528, end: 20100625
  5. MOSAPRIDE CITRATE [Concomitant]
     Indication: PROPHYLAXIS
     Dates: start: 20100514, end: 20100625
  6. PREDNISOLONE [Concomitant]
     Indication: RHEUMATOID ARTHRITIS
     Route: 048
     Dates: start: 20100108, end: 20100625
  7. LIMAPROST ALFADEX [Concomitant]
     Indication: PRODUCT USED FOR UNKNOWN INDICATION
     Dates: start: 20100409, end: 20100625
  8. MECOBALAMIN [Concomitant]
     Indication: PRODUCT USED FOR UNKNOWN INDICATION
     Dates: start: 20100528, end: 20100625
  9. DIGESTIVE ENZYME PREPARATIONS [Concomitant]
     Indication: PROPHYLAXIS
     Dates: start: 20100514, end: 20100625
  10. MOSAPRIDE CITRATE [Concomitant]
     Indication: GASTROINTESTINAL DISORDER
  11. MISOPROSTOL [Concomitant]
     Indication: PROPHYLAXIS
     Dates: start: 20091222, end: 20100625
  12. DIGESTIVE ENZYME PREPARATIONS [Concomitant]
     Indication: GASTROINTESTINAL DISORDER
  13. OMEPRAZOLE [Concomitant]
     Indication: PROPHYLAXIS
     Dates: start: 20100108, end: 20100625
  14. OMEPRAZOLE [Concomitant]
     Indication: GASTROINTESTINAL DISORDER
  15. DICLOFENAC SODIUM [Concomitant]
     Indication: RHEUMATOID ARTHRITIS
     Dates: start: 20100108, end: 20100625
  16. LOXOPROFEN SODIUM HYDRATE [Concomitant]
     Indication: RHEUMATOID ARTHRITIS
     Dates: start: 20091222, end: 20100625

REACTIONS (3)
  - CAUDA EQUINA SYNDROME [None]
  - COMPRESSION FRACTURE [None]
  - SPINAL COLUMN STENOSIS [None]
